FAERS Safety Report 7792060-5 (Version None)
Quarter: 2011Q3

REPORT INFORMATION
  Report Type: 
  Country: None (occurrence: None)
  Receive Date: 20110930
  Receipt Date: 20110930
  Transmission Date: 20111222
  Serious: Yes (Other)
  Sender: FDA-Public Use
  Company Number: None

PATIENT
  Age: 53 Year
  Sex: Male
  Weight: 78.0187 kg

DRUGS (1)
  1. CRESTOR [Suspect]
     Indication: BLOOD CHOLESTEROL INCREASED
     Dosage: 10MG 1 A DAY
     Dates: start: 20040101, end: 20110901

REACTIONS (10)
  - INSOMNIA [None]
  - DAYDREAMING [None]
  - PYREXIA [None]
  - AMNESIA [None]
  - MYALGIA [None]
  - DEPRESSION [None]
  - ARTHRALGIA [None]
  - FATIGUE [None]
  - MUSCLE SPASMS [None]
  - GASTROOESOPHAGEAL REFLUX DISEASE [None]
